FAERS Safety Report 8826495 (Version 1)
Quarter: 2012Q4

REPORT INFORMATION
  Report Type: 
  Country: BE (occurrence: BE)
  Receive Date: 20121005
  Receipt Date: 20121005
  Transmission Date: 20130627
  Serious: Yes (Other)
  Sender: FDA-Public Use
  Company Number: BE-WATSON-2012-13910

PATIENT
  Sex: Male

DRUGS (4)
  1. TRELSTAR (WATSON LABORATORIES) [Suspect]
     Indication: PARAPHILIA
     Dosage: 11.25 mg milligram(s) once every 3 months
     Route: 030
     Dates: start: 201110
  2. EFFEXOR [Concomitant]
     Indication: PRODUCT USED FOR UNKNOWN INDICATION
     Dosage: UNK
     Route: 065
  3. INDERAL [Concomitant]
     Indication: PRODUCT USED FOR UNKNOWN INDICATION
     Dosage: UNK
     Route: 065
  4. DORMINAL [Concomitant]
     Indication: PRODUCT USED FOR UNKNOWN INDICATION
     Route: 065

REACTIONS (1)
  - Disturbance in sexual arousal [Not Recovered/Not Resolved]
